FAERS Safety Report 4392867-0 (Version None)
Quarter: 2004Q3

REPORT INFORMATION
  Report Type: 
  Country: None (occurrence: None)
  Receive Date: 20040702
  Receipt Date: 20040625
  Transmission Date: 20050211
  Serious: Yes (Hospitalization, Other)
  Sender: FDA-Public Use
  Company Number: 200410326BFR

PATIENT
  Age: 76 Year
  Sex: Male
  Weight: 65 kg

DRUGS (2)
  1. CIPROFLOXACIN [Suspect]
     Dosage: 200 MG, QD, INTRAVENOUS ; 200 MG, BID, INTRAVENOUS
     Route: 042
     Dates: start: 20040225, end: 20040227
  2. CIPROFLOXACIN [Suspect]
     Dosage: 200 MG, QD, INTRAVENOUS ; 200 MG, BID, INTRAVENOUS
     Route: 042
     Dates: start: 20040227, end: 20040301

REACTIONS (7)
  - DRUG LEVEL INCREASED [None]
  - ENCEPHALOPATHY [None]
  - GENERAL PHYSICAL HEALTH DETERIORATION [None]
  - INFECTION [None]
  - MULTI-ORGAN FAILURE [None]
  - MYOCLONUS [None]
  - RESPIRATORY DISTRESS [None]
